FAERS Safety Report 8923222 (Version 2)
Quarter: 2013Q1

REPORT INFORMATION
  Report Type: Report from Study
  Country: FR (occurrence: FR)
  Receive Date: 20121123
  Receipt Date: 20130122
  Transmission Date: 20140127
  Serious: Yes (Hospitalization)
  Sender: FDA-Public Use
  Company Number: FR-ROCHE-1155070

PATIENT
  Age: 59 Year
  Sex: Female

DRUGS (11)
  1. BEVACIZUMAB [Suspect]
     Indication: COLORECTAL CANCER METASTATIC
     Route: 065
  2. IRINOTECAN [Suspect]
     Indication: COLORECTAL CANCER METASTATIC
     Route: 065
  3. ELVORINE [Suspect]
     Indication: COLORECTAL CANCER METASTATIC
     Route: 065
  4. FLUOROURACIL [Suspect]
     Indication: COLORECTAL CANCER METASTATIC
     Route: 065
  5. INEXIUM [Concomitant]
     Indication: PROPHYLAXIS
     Route: 065
  6. LYSANXIA [Concomitant]
     Indication: ANXIETY
     Route: 065
  7. PARACETAMOL [Concomitant]
     Indication: PAIN
     Route: 065
  8. ZOPHREN [Concomitant]
     Indication: NAUSEA
     Route: 065
  9. ZOPHREN [Concomitant]
     Indication: VOMITING
  10. VOGALENE [Concomitant]
     Indication: NAUSEA
     Route: 065
  11. VOGALENE [Concomitant]
     Indication: VOMITING

REACTIONS (4)
  - Loss of consciousness [Recovering/Resolving]
  - Renal failure [Recovering/Resolving]
  - Hypokalaemia [Recovered/Resolved]
  - Hyponatraemia [Recovered/Resolved]
